FAERS Safety Report 24147535 (Version 1)
Quarter: 2024Q3

REPORT INFORMATION
  Report Type: Spontaneous
  Country: CA (occurrence: CA)
  Receive Date: 20240729
  Receipt Date: 20240729
  Transmission Date: 20241016
  Serious: Yes (Hospitalization)
  Sender: MYLAN
  Company Number: CA-MYLANLABS-2024M1068721

PATIENT
  Sex: Male

DRUGS (16)
  1. VALPROIC ACID [Suspect]
     Active Substance: VALPROIC ACID
     Indication: Substance use disorder
     Dosage: 1000 MILLIGRAM, QD (1 EVERY 1 DAYS)
     Route: 065
  2. VALPROIC ACID [Suspect]
     Active Substance: VALPROIC ACID
     Indication: Schizophrenia
  3. VALPROIC ACID [Suspect]
     Active Substance: VALPROIC ACID
     Indication: Schizoaffective disorder
  4. VALPROIC ACID [Suspect]
     Active Substance: VALPROIC ACID
     Indication: Antisocial personality disorder
  5. FLUPENTIXOL [Suspect]
     Active Substance: FLUPENTIXOL
     Indication: Substance use disorder
     Dosage: 120 MILLIGRAM
     Route: 065
  6. FLUPENTIXOL [Suspect]
     Active Substance: FLUPENTIXOL
     Indication: Schizophrenia
  7. FLUPENTIXOL [Suspect]
     Active Substance: FLUPENTIXOL
     Indication: Schizoaffective disorder
  8. FLUPENTIXOL [Suspect]
     Active Substance: FLUPENTIXOL
     Indication: Antisocial personality disorder
  9. LOXAPINE [Suspect]
     Active Substance: LOXAPINE
     Indication: Substance use disorder
     Dosage: 300 MILLIGRAM, QD (1 EVERY 1 DAYS)
     Route: 065
  10. LOXAPINE [Suspect]
     Active Substance: LOXAPINE
     Indication: Schizophrenia
  11. LOXAPINE [Suspect]
     Active Substance: LOXAPINE
     Indication: Schizoaffective disorder
  12. LOXAPINE [Suspect]
     Active Substance: LOXAPINE
     Indication: Antisocial personality disorder
  13. OLANZAPINE [Suspect]
     Active Substance: OLANZAPINE
     Indication: Substance use disorder
     Dosage: 35 MILLIGRAM, QD (1 EVERY 1 DAYS)
     Route: 048
  14. OLANZAPINE [Suspect]
     Active Substance: OLANZAPINE
     Indication: Schizophrenia
  15. OLANZAPINE [Suspect]
     Active Substance: OLANZAPINE
     Indication: Schizoaffective disorder
  16. OLANZAPINE [Suspect]
     Active Substance: OLANZAPINE
     Indication: Antisocial personality disorder

REACTIONS (1)
  - Drug ineffective [Unknown]
